FAERS Safety Report 17789557 (Version 1)
Quarter: 2020Q2

REPORT INFORMATION
  Report Type: Spontaneous
  Country: US (occurrence: US)
  Receive Date: 20200514
  Receipt Date: 20200514
  Transmission Date: 20200714
  Serious: Yes (Other)
  Sender: FDA-Public Use
  Company Number: US-SUNOVION-2020SUN001391

PATIENT
  Sex: Female

DRUGS (1)
  1. XOPENEX [Suspect]
     Active Substance: LEVALBUTEROL HYDROCHLORIDE
     Indication: ASTHMA
     Dosage: UNK
     Route: 055

REACTIONS (6)
  - Product expiration date issue [Unknown]
  - Vomiting [Unknown]
  - Off label use [Unknown]
  - Intentional device use issue [Unknown]
  - Choking [Unknown]
  - Asthma [Unknown]
